FAERS Safety Report 8357853-4 (Version None)
Quarter: 2012Q2

REPORT INFORMATION
  Report Type: 
  Country: None (occurrence: None)
  Receive Date: 20120514
  Receipt Date: 20120507
  Transmission Date: 20120825
  Serious: Yes (Other)
  Sender: FDA-Public Use
  Company Number: FR-ABBOTT-12P-056-0932998-00

PATIENT
  Sex: Female

DRUGS (4)
  1. CLARITHROMYCIN [Suspect]
     Indication: MYCOBACTERIAL INFECTION
     Route: 048
     Dates: start: 20120314, end: 20120418
  2. CLARITHROMYCIN [Suspect]
     Indication: ATYPICAL MYCOBACTERIAL INFECTION
  3. MOXIFLOXACIN HCL [Suspect]
     Indication: MYCOBACTERIAL INFECTION
     Dates: start: 20120314, end: 20120418
  4. AMIKACIN [Concomitant]
     Indication: MYCOBACTERIAL INFECTION
     Route: 042
     Dates: start: 20120314, end: 20120328

REACTIONS (3)
  - LABORATORY TEST ABNORMAL [None]
  - DYSGEUSIA [None]
  - MIXED LIVER INJURY [None]
